FAERS Safety Report 9785073 (Version 1)
Quarter: 2013Q4

REPORT INFORMATION
  Report Type: Spontaneous
  Country: GB (occurrence: GB)
  Receive Date: 20131227
  Receipt Date: 20131227
  Transmission Date: 20140711
  Serious: Yes (Disabling)
  Sender: FDA-Public Use
  Company Number: GB-ASTRAZENECA-2013SE92508

PATIENT
  Age: 66 Year
  Sex: Male
  Weight: 86.7 kg

DRUGS (7)
  1. NEXIUM [Suspect]
     Indication: DYSPEPSIA
     Route: 048
     Dates: start: 20000101, end: 20120914
  2. ASPIRIN [Concomitant]
  3. BENDROFLUMETHIAZIDE [Concomitant]
  4. CLONIDINE [Concomitant]
  5. EZETIMIBE [Concomitant]
  6. GAVISCON [Concomitant]
     Route: 048
  7. PARACETAMOL [Concomitant]

REACTIONS (6)
  - Dementia [Unknown]
  - Memory impairment [Not Recovered/Not Resolved]
  - Petit mal epilepsy [Unknown]
  - Convulsion [Not Recovered/Not Resolved]
  - Oral candidiasis [Recovered/Resolved]
  - Aggression [Recovering/Resolving]
